FAERS Safety Report 9791448 (Version 1)
Quarter: 2014Q1

REPORT INFORMATION
  Report Type: Spontaneous
  Country: DE (occurrence: DE)
  Receive Date: 20140101
  Receipt Date: 20140101
  Transmission Date: 20141002
  Serious: Yes (Other)
  Sender: FDA-Public Use
  Company Number: PHHY2013DE152942

PATIENT
  Age: 27 Year
  Sex: Female

DRUGS (7)
  1. CICLOSPORIN [Suspect]
  2. PREDNISOLONE [Suspect]
     Indication: PYODERMA GANGRENOSUM
     Dosage: 1 MG/KG, UNK
  3. PREDNISOLONE [Suspect]
     Indication: COLITIS ULCERATIVE
  4. ADALIMUMAB [Concomitant]
  5. CLOBETASOL PROPIONATE [Concomitant]
  6. GENTAMYCINE [Concomitant]
  7. TACROLIMUS [Concomitant]
     Route: 061

REACTIONS (3)
  - Pyoderma gangrenosum [Unknown]
  - Pain [Unknown]
  - Drug resistance [Unknown]
